FAERS Safety Report 18790833 (Version 4)
Quarter: 2021Q1

REPORT INFORMATION
  Report Type: Spontaneous
  Country: US (occurrence: US)
  Receive Date: 20210126
  Receipt Date: 20210218
  Transmission Date: 20210419
  Serious: No
  Sender: FDA-Public Use
  Company Number: US-PFIZER INC-2021057900

PATIENT
  Age: 85 Year
  Sex: Female

DRUGS (2)
  1. IBRANCE [Suspect]
     Active Substance: PALBOCICLIB
     Dosage: 125 MG
  2. IBRANCE [Suspect]
     Active Substance: PALBOCICLIB
     Dosage: 75 MG, CYCLIC (2 WEEKS OFF INSTEAD OF JUST 1)

REACTIONS (5)
  - Confusional state [Unknown]
  - Intentional product use issue [Unknown]
  - Product use issue [Unknown]
  - Hypoacusis [Unknown]
  - Off label use [Unknown]
